FAERS Safety Report 20277117 (Version 1)
Quarter: 2022Q1

REPORT INFORMATION
  Report Type: Report from Study
  Country: CA (occurrence: CA)
  Receive Date: 20220102
  Receipt Date: 20220102
  Transmission Date: 20220423
  Serious: Yes (Other)
  Sender: FDA-Public Use
  Company Number: CA-JNJFOC-20211225556

PATIENT
  Age: 48 Year
  Sex: Female
  Weight: 83.7 kg

DRUGS (2)
  1. SIMPONI [Suspect]
     Active Substance: GOLIMUMAB
     Indication: Colitis ulcerative
     Dosage: STRENGTH = 100 MG
     Route: 058
     Dates: start: 20210121
  2. LANSOPRAZOLE [Concomitant]
     Active Substance: LANSOPRAZOLE
     Indication: Abdominal discomfort
     Route: 065

REACTIONS (8)
  - Haematochezia [Unknown]
  - COVID-19 [Not Recovered/Not Resolved]
  - Dizziness [Unknown]
  - Diarrhoea [Unknown]
  - Abdominal pain upper [Unknown]
  - Cold sweat [Unknown]
  - Skin lesion [Unknown]
  - Neck pain [Unknown]

NARRATIVE: CASE EVENT DATE: 20211018
